FAERS Safety Report 12775916 (Version 2)
Quarter: 2016Q4

REPORT INFORMATION
  Report Type: Spontaneous
  Country: US (occurrence: US)
  Receive Date: 20160923
  Receipt Date: 20161107
  Transmission Date: 20170207
  Serious: Yes (Hospitalization, Other)
  Sender: FDA-Public Use
  Company Number: US-SMITH AND NEPHEW, INC-2016SMT00813

PATIENT
  Age: 44 Year
  Sex: Male
  Weight: 95.24 kg

DRUGS (8)
  1. REGRANEX [Suspect]
     Active Substance: BECAPLERMIN
     Indication: DIABETIC ULCER
     Dosage: UNK UNK, 1X/DAY
     Route: 061
     Dates: start: 201608, end: 20160921
  2. METFORMIN [Concomitant]
     Active Substance: METFORMIN HYDROCHLORIDE
     Dosage: 1000 MG, 2X/DAY
  3. AMLODIPINE [Concomitant]
     Active Substance: AMLODIPINE BESYLATE
     Dosage: 10 MG, 1X/DAY
  4. CARVEDILOL. [Concomitant]
     Active Substance: CARVEDILOL
     Dosage: 6.25 MG, 2X/DAY
  5. REGRANEX [Suspect]
     Active Substance: BECAPLERMIN
     Dosage: UNK
     Route: 061
     Dates: start: 20160915
  6. UNSPECIFIED INSULIN PRODUCT [Concomitant]
     Dosage: 20 U, 2X/DAY
  7. LISINOPRIL. [Concomitant]
     Active Substance: LISINOPRIL
     Dosage: 40 MG, 1X/DAY
  8. ATORVASTATIN [Concomitant]
     Active Substance: ATORVASTATIN
     Dosage: UNK, 1X/DAY

REACTIONS (1)
  - Staphylococcal abscess [Recovering/Resolving]

NARRATIVE: CASE EVENT DATE: 201608
